FAERS Safety Report 7597811-0 (Version None)
Quarter: 2011Q3

REPORT INFORMATION
  Report Type: 
  Country: None (occurrence: None)
  Receive Date: 20110708
  Receipt Date: 20110705
  Transmission Date: 20111222
  Serious: Yes (Hospitalization, Congenital Anomaly, Other)
  Sender: FDA-Public Use
  Company Number: US-PFIZER INC-2011151207

PATIENT
  Sex: Female
  Weight: 3.3 kg

DRUGS (1)
  1. ZOLOFT [Suspect]
     Dosage: 50 MG, HALF TABLET DAILY
     Route: 064
     Dates: start: 19970528

REACTIONS (6)
  - OTITIS MEDIA [None]
  - MATERNAL EXPOSURE DURING PREGNANCY [None]
  - FALLOT'S TETRALOGY [None]
  - ATRIAL SEPTAL DEFECT [None]
  - PULMONARY VALVE INCOMPETENCE [None]
  - CYTOGENETIC ABNORMALITY [None]
